FAERS Safety Report 6294083-4 (Version None)
Quarter: 2009Q3

REPORT INFORMATION
  Report Type: 
  Country: None (occurrence: None)
  Receive Date: 20090803
  Receipt Date: 20081013
  Transmission Date: 20100115
  Serious: No
  Sender: FDA-Public Use
  Company Number: A0751762A

PATIENT
  Age: 58 Year
  Sex: Female

DRUGS (2)
  1. NICORETTE [Suspect]
     Indication: NICOTINE DEPENDENCE
  2. XANAX [Concomitant]

REACTIONS (1)
  - INTENTIONAL DRUG MISUSE [None]
